FAERS Safety Report 9262170 (Version 2)
Quarter: 2013Q2

REPORT INFORMATION
  Report Type: Spontaneous
  Country: US (occurrence: US)
  Receive Date: 20130430
  Receipt Date: 20130524
  Transmission Date: 20140414
  Serious: Yes (Hospitalization)
  Sender: FDA-Public Use
  Company Number: US-BIOGENIDEC-2013BI037865

PATIENT
  Age: 49 Year
  Sex: Female

DRUGS (6)
  1. TYSABRI [Suspect]
     Indication: MULTIPLE SCLEROSIS
     Route: 042
     Dates: start: 20120619, end: 20130406
  2. AMLODIPINE [Concomitant]
     Indication: HYPERTENSION
  3. ASPIRIN [Concomitant]
  4. LANTUS [Concomitant]
  5. INSULIN GLULISINE [Concomitant]
  6. METOPROLOL [Concomitant]

REACTIONS (5)
  - Hypertension [Unknown]
  - Hyperlipidaemia [Unknown]
  - Diabetes mellitus [Unknown]
  - Drug specific antibody present [Unknown]
  - Cerebrovascular accident [Unknown]
